FAERS Safety Report 24298968 (Version 1)
Quarter: 2024Q3

REPORT INFORMATION
  Report Type: Report from Study
  Country: US (occurrence: US)
  Receive Date: 20240909
  Receipt Date: 20240909
  Transmission Date: 20241017
  Serious: No
  Sender: TAKEDA
  Company Number: US-TAKEDA-2024TUS089671

PATIENT
  Age: 79 Year
  Sex: Male

DRUGS (12)
  1. TEDUGLUTIDE [Suspect]
     Active Substance: TEDUGLUTIDE
     Indication: Short-bowel syndrome
     Dosage: 4.20 MILLIGRAM, QD
     Route: 042
     Dates: start: 20180921, end: 201810
  2. TEDUGLUTIDE [Suspect]
     Active Substance: TEDUGLUTIDE
     Indication: Short-bowel syndrome
     Dosage: 4.20 MILLIGRAM, QD
     Route: 042
     Dates: start: 20180921, end: 201810
  3. TEDUGLUTIDE [Suspect]
     Active Substance: TEDUGLUTIDE
     Indication: Short-bowel syndrome
     Dosage: 4.20 MILLIGRAM, QD
     Route: 042
     Dates: start: 20180921, end: 201810
  4. TEDUGLUTIDE [Suspect]
     Active Substance: TEDUGLUTIDE
     Indication: Short-bowel syndrome
     Dosage: 4.20 MILLIGRAM, QD
     Route: 042
     Dates: start: 20180921, end: 201810
  5. TEDUGLUTIDE [Suspect]
     Active Substance: TEDUGLUTIDE
     Dosage: 4.2 MILLIGRAM, 2/WEEK
     Route: 042
     Dates: start: 20181209, end: 201902
  6. TEDUGLUTIDE [Suspect]
     Active Substance: TEDUGLUTIDE
     Dosage: 4.2 MILLIGRAM, 2/WEEK
     Route: 042
     Dates: start: 20181209, end: 201902
  7. TEDUGLUTIDE [Suspect]
     Active Substance: TEDUGLUTIDE
     Dosage: 4.2 MILLIGRAM, 2/WEEK
     Route: 042
     Dates: start: 20181209, end: 201902
  8. TEDUGLUTIDE [Suspect]
     Active Substance: TEDUGLUTIDE
     Dosage: 4.2 MILLIGRAM, 2/WEEK
     Route: 042
     Dates: start: 20181209, end: 201902
  9. TEDUGLUTIDE [Suspect]
     Active Substance: TEDUGLUTIDE
     Dosage: 2.1 MILLIGRAM, 2/WEEK
     Route: 042
     Dates: start: 201903, end: 20190320
  10. TEDUGLUTIDE [Suspect]
     Active Substance: TEDUGLUTIDE
     Dosage: 2.1 MILLIGRAM, 2/WEEK
     Route: 042
     Dates: start: 201903, end: 20190320
  11. TEDUGLUTIDE [Suspect]
     Active Substance: TEDUGLUTIDE
     Dosage: 2.1 MILLIGRAM, 2/WEEK
     Route: 042
     Dates: start: 201903, end: 20190320
  12. TEDUGLUTIDE [Suspect]
     Active Substance: TEDUGLUTIDE
     Dosage: 2.1 MILLIGRAM, 2/WEEK
     Route: 042
     Dates: start: 201903, end: 20190320

REACTIONS (3)
  - Bronchitis [Recovered/Resolved]
  - Seborrhoeic keratosis [Recovered/Resolved]
  - Pharyngitis [Recovered/Resolved]

NARRATIVE: CASE EVENT DATE: 20240410
